FAERS Safety Report 18222387 (Version 1)
Quarter: 2020Q3

REPORT INFORMATION
  Report Type: Spontaneous
  Country: US (occurrence: US)
  Receive Date: 20200902
  Receipt Date: 20200902
  Transmission Date: 20201103
  Serious: No
  Sender: FDA-Public Use
  Company Number: US-BEH-2020121843

PATIENT
  Sex: Female

DRUGS (1)
  1. HIZENTRA [Suspect]
     Active Substance: HUMAN IMMUNOGLOBULIN G
     Indication: IMMUNODEFICIENCY
     Dosage: 12 GRAMS, EVERY 10 DAYS
     Route: 058
     Dates: start: 20200527

REACTIONS (4)
  - Poor venous access [Unknown]
  - Pruritus [Unknown]
  - Headache [Unknown]
  - Weight decreased [Unknown]
